FAERS Safety Report 5526493-4 (Version None)
Quarter: 2007Q4

REPORT INFORMATION
  Report Type: 
  Country: None (occurrence: None)
  Receive Date: 20071121
  Receipt Date: 20071121
  Transmission Date: 20080405
  Serious: Yes (Other)
  Sender: FDA-Public Use
  Company Number: None

PATIENT
  Age: 63 Year
  Sex: Female

DRUGS (2)
  1. COMPAZINE [Suspect]
     Indication: NAUSEA
     Dosage: 5MG  EVERY 4-6 H PRN   IV
     Route: 042
     Dates: start: 20071114, end: 20071116
  2. COMPAZINE [Suspect]
     Indication: VOMITING
     Dosage: 5MG  EVERY 4-6 H PRN   IV
     Route: 042
     Dates: start: 20071114, end: 20071116

REACTIONS (2)
  - SPEECH DISORDER [None]
  - TETANY [None]
